FAERS Safety Report 6054078-2 (Version None)
Quarter: 2009Q1

REPORT INFORMATION
  Report Type: 
  Country: None (occurrence: None)
  Receive Date: 20090127
  Receipt Date: 20090122
  Transmission Date: 20090719
  Serious: Yes (Other)
  Sender: FDA-Public Use
  Company Number: GB-ROCHE-599618

PATIENT
  Sex: Female

DRUGS (3)
  1. ISOTRETINOIN [Suspect]
     Indication: ACNE
     Dosage: 20/40MG ON ALTERNATE DAYS
     Route: 048
     Dates: start: 20060124, end: 20060601
  2. MINOCIN [Suspect]
     Indication: ACNE
     Route: 048
     Dates: start: 20051212, end: 20060101
  3. ERYTHROMYCIN [Concomitant]
     Indication: ACNE
     Route: 048
     Dates: start: 20060124, end: 20060206

REACTIONS (3)
  - ANXIETY [None]
  - BASEDOW'S DISEASE [None]
  - DEPRESSION [None]
